FAERS Safety Report 10211080 (Version 1)
Quarter: 2014Q2

REPORT INFORMATION
  Report Type: Spontaneous
  Country: US (occurrence: None)
  Receive Date: 20140528
  Receipt Date: 20140528
  Transmission Date: 20141212
  Serious: Yes (Other)
  Sender: FDA-Public Use
  Company Number: 2014SA054257

PATIENT
  Age: 62 Year
  Sex: Female

DRUGS (1)
  1. NASACORT [Suspect]
     Indication: HYPERSENSITIVITY
     Dosage: 1 UNIT(S); DAILY

REACTIONS (5)
  - Postoperative wound infection [None]
  - Systemic lupus erythematosus [None]
  - Ocular hyperaemia [None]
  - Eye pruritus [None]
  - Incision site infection [None]
